FAERS Safety Report 9928271 (Version 1)
Quarter: 2014Q1

REPORT INFORMATION
  Report Type: Spontaneous
  Country: NO (occurrence: NO)
  Receive Date: 20140227
  Receipt Date: 20140227
  Transmission Date: 20141002
  Serious: Yes (Hospitalization)
  Sender: FDA-Public Use
  Company Number: NO-SA-2014SA019992

PATIENT
  Age: 80 Year
  Sex: Female

DRUGS (6)
  1. ARAVA [Suspect]
     Indication: RHEUMATOID ARTHRITIS
     Route: 048
     Dates: start: 2009, end: 20140129
  2. CENTYL MED KALIUMKLORID [Concomitant]
     Indication: HYPERTENSION
     Route: 048
  3. CALCIGRAN [Concomitant]
     Indication: OSTEOPOROSIS
     Route: 048
  4. PREDNISOLON [Concomitant]
     Indication: RHEUMATOID ARTHRITIS
     Route: 048
  5. ENTOCORT [Concomitant]
     Indication: COLITIS MICROSCOPIC
  6. SOMAC [Concomitant]
     Indication: GASTROOESOPHAGEAL REFLUX DISEASE
     Route: 048

REACTIONS (1)
  - Hepatic enzyme increased [Recovered/Resolved]
